FAERS Safety Report 13096066 (Version 2)
Quarter: 2018Q1

REPORT INFORMATION
  Report Type: Spontaneous
  Country: US (occurrence: US)
  Receive Date: 20170109
  Receipt Date: 20180112
  Transmission Date: 20180508
  Serious: No
  Sender: FDA-Public Use
  Company Number: US-DRREDDYS-USA/USA/16/0084707

PATIENT
  Age: 58 Year
  Sex: Female
  Weight: 77.11 kg

DRUGS (3)
  1. HABITROL [Suspect]
     Active Substance: NICOTINE
     Route: 062
     Dates: start: 20161108
  2. HABITROL [Suspect]
     Active Substance: NICOTINE
     Route: 065
     Dates: start: 201608
  3. HABITROL [Suspect]
     Active Substance: NICOTINE
     Indication: SMOKING CESSATION THERAPY
     Route: 065

REACTIONS (7)
  - Head discomfort [Unknown]
  - Expired product administered [Unknown]
  - Eye pain [Unknown]
  - Feeling abnormal [Unknown]
  - Pallor [Unknown]
  - Treatment noncompliance [Unknown]
  - Tinnitus [Unknown]

NARRATIVE: CASE EVENT DATE: 201603
